FAERS Safety Report 10203329 (Version 1)
Quarter: 2014Q2

REPORT INFORMATION
  Report Type: Report from Study
  Country: US (occurrence: US)
  Receive Date: 20140529
  Receipt Date: 20140529
  Transmission Date: 20141212
  Serious: Yes (Hospitalization)
  Sender: FDA-Public Use
  Company Number: PHEH2014US010582

PATIENT
  Age: 43 Year
  Sex: Male

DRUGS (2)
  1. CLOZARIL [Suspect]
     Dosage: UNK UKN, UNK
  2. CLOZARIL [Suspect]
     Dosage: 200 MG, QD

REACTIONS (3)
  - Mental status changes [Unknown]
  - White blood cell count increased [Unknown]
  - Neutrophil count increased [Unknown]
